FAERS Safety Report 4824137-8 (Version None)
Quarter: 2005Q4

REPORT INFORMATION
  Report Type: 
  Country: None (occurrence: None)
  Receive Date: 20051109
  Receipt Date: 20050428
  Transmission Date: 20060501
  Serious: Yes (Hospitalization)
  Sender: FDA-Public Use
  Company Number: DE-AMGEN-US129898

PATIENT
  Sex: Male
  Weight: 90.1 kg

DRUGS (11)
  1. ETANERCEPT [Suspect]
     Indication: ANKYLOSING SPONDYLITIS
     Route: 058
     Dates: start: 20020924
  2. HYPROMELLOSE [Concomitant]
     Dates: start: 20020523, end: 20030301
  3. RANTUDIL [Concomitant]
     Dates: start: 20020222, end: 20020630
  4. ACETAMINOPHEN [Concomitant]
     Dates: start: 20020806, end: 20020816
  5. ACETAMINOPHEN [Concomitant]
     Dates: start: 20050104, end: 20050106
  6. DOXYCYCLINE [Concomitant]
     Dates: start: 20050621, end: 20050630
  7. DICLOFENAC [Concomitant]
     Dates: start: 20040713, end: 20040803
  8. ACETAMINOPHEN [Concomitant]
     Dates: start: 20050104, end: 20050107
  9. ACETAMINOPHEN [Concomitant]
     Dates: start: 20050621, end: 20050624
  10. ASPIRIN [Concomitant]
     Dates: start: 20050621, end: 20050624
  11. CAFFEINE [Concomitant]
     Dates: start: 20050621, end: 20050624

REACTIONS (1)
  - HEPATIC STEATOSIS [None]
